FAERS Safety Report 7221086-5 (Version None)
Quarter: 2011Q1

REPORT INFORMATION
  Report Type: 
  Country: None (occurrence: None)
  Receive Date: 20110112
  Receipt Date: 20110110
  Transmission Date: 20110831
  Serious: No
  Sender: FDA-Public Use
  Company Number: US-PFIZER INC-2011006320

PATIENT
  Sex: Female

DRUGS (1)
  1. LYRICA [Suspect]
     Indication: NEUROPATHY PERIPHERAL
     Dosage: 100 MG, 3X/DAY

REACTIONS (5)
  - OEDEMA PERIPHERAL [None]
  - SOMNOLENCE [None]
  - HEADACHE [None]
  - DRUG HYPERSENSITIVITY [None]
  - DIZZINESS [None]
